FAERS Safety Report 9093557 (Version 1)
Quarter: 2013Q1

REPORT INFORMATION
  Report Type: Spontaneous
  Country: US (occurrence: US)
  Receive Date: 20130201
  Receipt Date: 20130201
  Transmission Date: 20140127
  Serious: Yes (Hospitalization)
  Sender: FDA-Public Use
  Company Number: US-BAYER-2013-012864

PATIENT
  Age: 27 Year
  Sex: Female
  Weight: 123 kg

DRUGS (11)
  1. YAZ [Suspect]
  2. YASMIN [Suspect]
     Indication: MENORRHAGIA
  3. LORATADINE [Concomitant]
     Dosage: 10 MG, UNK
     Dates: start: 20070604
  4. SINGULAIR [Concomitant]
     Dosage: 10 MG, UNK
     Dates: start: 20070702, end: 20070814
  5. ALBUTEROL [Concomitant]
     Dosage: 0.083
     Dates: start: 20070905, end: 20070930
  6. ALBUTEROL [Concomitant]
     Dosage: 2 PUFF EVERY FOUR HOURS AS NEEDED
     Dates: start: 20070924, end: 20070930
  7. LEVAQUIN [Concomitant]
     Dosage: 500 MG, UNK
     Dates: start: 20070905, end: 20070924
  8. FLONASE [Concomitant]
     Dosage: 50 M B.I.D. (TWICE DAILY)
     Dates: start: 20070924, end: 20070930
  9. BENADRYL [Concomitant]
  10. ZYRTEC [Concomitant]
  11. TYLENOL [Concomitant]
     Dosage: UNK UNK, PRN
     Dates: start: 20070930

REACTIONS (1)
  - Pulmonary embolism [Recovered/Resolved]
